FAERS Safety Report 4675910-0 (Version None)
Quarter: 2005Q2

REPORT INFORMATION
  Report Type: 
  Country: None (occurrence: None)
  Receive Date: 20050527
  Receipt Date: 20050517
  Transmission Date: 20051028
  Serious: Yes (Hospitalization, Other)
  Sender: FDA-Public Use
  Company Number: DE-JNJFOC-20050201858

PATIENT
  Sex: Male
  Weight: 83 kg

DRUGS (9)
  1. REMICADE [Suspect]
     Route: 042
  2. REMICADE [Suspect]
     Route: 042
  3. REMICADE [Suspect]
     Indication: RHEUMATOID ARTHRITIS
     Route: 042
  4. METHOTREXATE [Concomitant]
     Indication: RHEUMATOID ARTHRITIS
     Route: 058
  5. PREDNISOLONE [Concomitant]
     Indication: RHEUMATOID ARTHRITIS
     Route: 049
  6. DICLOPHENAC [Concomitant]
     Indication: RHEUMATOID ARTHRITIS
     Dosage: 75-150MG/DAY
     Route: 049
  7. PANTOPRAZOLE SODIUM [Concomitant]
     Indication: GASTROINTESTINAL DISORDER THERAPY
     Route: 049
  8. ALENDRONATE SODIUM [Concomitant]
     Indication: OSTEOPOROSIS
     Route: 049
  9. FOLATE [Concomitant]
     Indication: FOLATE DEFICIENCY
     Route: 049

REACTIONS (2)
  - CRYPTOGENIC ORGANIZING PNEUMONIA [None]
  - PNEUMONIA LEGIONELLA [None]
